FAERS Safety Report 6546834-9 (Version None)
Quarter: 2010Q1

REPORT INFORMATION
  Report Type: 
  Country: None (occurrence: None)
  Receive Date: 20100122
  Receipt Date: 20100112
  Transmission Date: 20100710
  Serious: Yes (Hospitalization, Other)
  Sender: FDA-Public Use
  Company Number: BR-ABBOTT-10P-020-0618849-00

PATIENT
  Sex: Female

DRUGS (9)
  1. HUMIRA [Suspect]
     Indication: CROHN'S DISEASE
     Route: 058
     Dates: start: 20070101
  2. HUMIRA [Suspect]
     Indication: RHEUMATOID ARTHRITIS
     Dates: start: 20091201
  3. HUMIRA [Suspect]
     Dosage: 160 MG LOADING DOSE
  4. HUMIRA [Suspect]
     Dosage: 80 MG LOADING DOSE
  5. LOPERAMIDE [Concomitant]
     Indication: ABNORMAL FAECES
     Route: 048
     Dates: start: 19990101
  6. OMEPRAZOLE [Concomitant]
     Indication: PROPHYLAXIS AGAINST GASTROINTESTINAL ULCER
     Route: 048
     Dates: start: 19980101
  7. AZATHIOPRINE [Concomitant]
     Indication: IMMUNOSUPPRESSANT DRUG THERAPY
     Route: 048
     Dates: end: 20080101
  8. PARACETAMOL [Concomitant]
     Indication: PAIN
     Route: 048
  9. HYOSCINE/PARACETAMOL (BUSCOPAN PLUS) [Concomitant]
     Indication: GASTROINTESTINAL PAIN
     Route: 048

REACTIONS (7)
  - ARTHRALGIA [None]
  - JOINT SWELLING [None]
  - LOCAL SWELLING [None]
  - LOCALISED OEDEMA [None]
  - NODULE [None]
  - VENA CAVA THROMBOSIS [None]
  - VENOUS OCCLUSION [None]
